FAERS Safety Report 12656280 (Version 1)
Quarter: 2016Q3

REPORT INFORMATION
  Report Type: Spontaneous
  Country: US (occurrence: US)
  Receive Date: 20160816
  Receipt Date: 20160816
  Transmission Date: 20161109
  Serious: No
  Sender: FDA-Public Use
  Company Number: US-PERRIGO-15US007004

PATIENT
  Age: 86 Year
  Sex: Female
  Weight: 62.59 kg

DRUGS (5)
  1. LORATADINE. [Suspect]
     Active Substance: LORATADINE
     Indication: ERYTHEMA
     Dosage: 10 MG, QD AT 1100
     Route: 048
     Dates: start: 2012, end: 20150705
  2. BABY ASPIRIN [Concomitant]
     Active Substance: ASPIRIN
     Indication: ANTICOAGULANT THERAPY
     Dosage: UNK
     Route: 048
  3. LORATADINE. [Suspect]
     Active Substance: LORATADINE
     Indication: FLUSHING
     Dosage: 1/2 TABLET, SINGLE AT 0600
     Route: 048
     Dates: start: 20150706, end: 20150706
  4. LORATADINE. [Suspect]
     Active Substance: LORATADINE
     Indication: RASH
  5. PRAVACHOL [Concomitant]
     Active Substance: PRAVASTATIN SODIUM
     Indication: BLOOD CHOLESTEROL INCREASED
     Dosage: UNK
     Route: 048

REACTIONS (2)
  - Off label use [Not Recovered/Not Resolved]
  - Wrong technique in product usage process [Recovered/Resolved]

NARRATIVE: CASE EVENT DATE: 20150706
